FAERS Safety Report 9422497 (Version 1)
Quarter: 2013Q3

REPORT INFORMATION
  Report Type: Spontaneous
  Country: US (occurrence: US)
  Receive Date: 20130724
  Receipt Date: 20130724
  Transmission Date: 20140515
  Serious: Yes (Death, Hospitalization)
  Sender: FDA-Public Use
  Company Number: DAV-AE-ALP-13-17

PATIENT
  Age: 28 Year
  Sex: Male

DRUGS (2)
  1. ALPRAZOLAM [Suspect]
     Indication: OVERDOSE
  2. DIAMORPHINE (HEROIN) [Concomitant]

REACTIONS (5)
  - Chorea [None]
  - Dystonia [None]
  - Loss of consciousness [None]
  - Drooling [None]
  - Cyanosis [None]
